FAERS Safety Report 10055088 (Version 1)
Quarter: 2014Q2

REPORT INFORMATION
  Report Type: Spontaneous
  Country: US (occurrence: US)
  Receive Date: 20140402
  Receipt Date: 20140402
  Transmission Date: 20141212
  Serious: No
  Sender: FDA-Public Use
  Company Number: US-SA-2014SA008318

PATIENT
  Sex: Female

DRUGS (3)
  1. AUBAGIO [Suspect]
     Indication: PRODUCT USED FOR UNKNOWN INDICATION
     Route: 065
     Dates: start: 201305, end: 201312
  2. COLESTYRAMINE [Suspect]
     Indication: DRUG DETOXIFICATION
     Route: 065
  3. COLESTYRAMINE [Suspect]
     Indication: DRUG DETOXIFICATION
     Route: 065

REACTIONS (1)
  - Vomiting [Recovered/Resolved]
